FAERS Safety Report 7174128 (Version 2)
Quarter: 2012Q4

REPORT INFORMATION
  Report Type: Spontaneous
  Country: JP (occurrence: None)
  Receive Date: 20091029
  Receipt Date: 20121219
  Transmission Date: 20130627
  Serious: Yes (Hospitalization, Other)
  Sender: FDA-Public Use
  Company Number: 2008JP005078

PATIENT
  Age: 2 Year
  Sex: Female
  Weight: 10.7 kg

DRUGS (14)
  1. PROGRAF [Suspect]
     Indication: RENAL TRANSPLANT
     Route: 048
     Dates: end: 201202
  2. PROGRAF [Suspect]
     Indication: RENAL TRANSPLANT
     Route: 048
     Dates: start: 20070904, end: 20080420
  3. PROGRAF [Suspect]
     Indication: RENAL TRANSPLANT
     Dosage: 2 MG, BID, ORAL ; 3.6 MG, /D, ORAL ; 3.2 MG, /D, ORAL ; 2.8 MG, /D, ORAL
     Route: 048
     Dates: start: 20080421, end: 20080508
  4. PROGRAF [Suspect]
     Indication: RENAL TRANSPLANT
     Dosage: 2 MG, BID, ORAL ; 3.6 MG, /D, ORAL ; 3.2 MG, /D, ORAL ; 2.8 MG, /D, ORAL
     Route: 048
     Dates: start: 20080509, end: 20080527
  5. PROGRAF [Suspect]
     Indication: RENAL TRANSPLANT
     Route: 048
     Dates: start: 20080528, end: 2011
  6. PROGRAF [Suspect]
     Indication: RENAL TRANSPLANT
     Route: 048
     Dates: start: 201203
  7. MEDROL [Concomitant]
  8. CELLCEPT [Concomitant]
  9. LISINOPRIL [Concomitant]
  10. INCREMIN (CYANOCOBALAMIN) [Concomitant]
  11. SODIUM CHLORIDE (SODIUM CHLORIDE) [Concomitant]
  12. SULFAMETHOXAZOLE AND TRIMETHOPRIM [Concomitant]
  13. SIMULECT [Concomitant]
  14. DENOSINE /00784201/ (GANCICLOVIR) [Concomitant]

REACTIONS (9)
  - Cytomegalovirus hepatitis [None]
  - Renal tubular atrophy [None]
  - BK virus infection [None]
  - Epstein-Barr viraemia [None]
  - Blood creatine increased [None]
  - Kidney fibrosis [None]
  - Complications of transplanted kidney [None]
  - Product contamination [None]
  - Leiomyoma [None]
